FAERS Safety Report 4317948-9 (Version None)
Quarter: 2004Q1

REPORT INFORMATION
  Report Type: 
  Country: None (occurrence: None)
  Receive Date: 20040316
  Receipt Date: 20030507
  Transmission Date: 20041129
  Serious: Yes (Life-Threatening, Hospitalization)
  Sender: FDA-Public Use
  Company Number: NZ-GLAXOSMITHKLINE-B0298976A

PATIENT
  Age: 16 Year
  Sex: Female

DRUGS (2)
  1. LAMICTAL [Suspect]
     Indication: EPILEPSY
     Dosage: 25MG ALTERNATE DAYS
     Route: 048
  2. SODIUM VALPROATE [Concomitant]
     Indication: EPILEPSY
     Dosage: 1G PER DAY
     Route: 065
     Dates: start: 20020201

REACTIONS (10)
  - CUTANEOUS LUPUS ERYTHEMATOSUS [None]
  - DEPRESSED LEVEL OF CONSCIOUSNESS [None]
  - HEADACHE [None]
  - HYPOTENSION [None]
  - MENINGITIS ASEPTIC [None]
  - MUSCULOSKELETAL STIFFNESS [None]
  - OLIGURIA [None]
  - PYREXIA [None]
  - SOMNOLENCE [None]
  - VOMITING [None]
